FAERS Safety Report 6786524-0 (Version None)
Quarter: 2010Q2

REPORT INFORMATION
  Report Type: 
  Country: None (occurrence: None)
  Receive Date: 20100623
  Receipt Date: 20100622
  Transmission Date: 20101027
  Serious: No
  Sender: FDA-Public Use
  Company Number: B0659409A

PATIENT
  Age: 59 Year
  Sex: Male

DRUGS (1)
  1. ALLI [Suspect]
     Dosage: 60MG PER DAY
     Route: 048
     Dates: start: 20100521, end: 20100521

REACTIONS (3)
  - BLISTER [None]
  - HYPERSENSITIVITY [None]
  - PRODUCT QUALITY ISSUE [None]
